FAERS Safety Report 11776180 (Version 1)
Quarter: 2015Q4

REPORT INFORMATION
  Report Type: Report from Study
  Country: US (occurrence: US)
  Receive Date: 20151125
  Receipt Date: 20151125
  Transmission Date: 20160304
  Serious: Yes (Other)
  Sender: FDA-Public Use
  Company Number: US-AMGEN-USASL2015123565

PATIENT
  Sex: Male

DRUGS (1)
  1. SENSIPAR [Suspect]
     Active Substance: CINACALCET HYDROCHLORIDE
     Indication: PRODUCT USED FOR UNKNOWN INDICATION
     Dosage: 180 MG, UNK
     Route: 048

REACTIONS (6)
  - Haemoglobin decreased [Unknown]
  - Renal cancer [Unknown]
  - Cardiac flutter [Unknown]
  - Nephrolithiasis [Unknown]
  - Nausea [Unknown]
  - Heart rate increased [Unknown]
